FAERS Safety Report 5155598-5 (Version None)
Quarter: 2006Q4

REPORT INFORMATION
  Report Type: 
  Country: None (occurrence: None)
  Receive Date: 20061114
  Receipt Date: 20061108
  Transmission Date: 20070319
  Serious: Yes (Death, Hospitalization)
  Sender: FDA-Public Use
  Company Number: 163-20785-06050755

PATIENT
  Age: 70 Year
  Sex: Male

DRUGS (15)
  1. THALOMID [Suspect]
     Indication: MULTIPLE MYELOMA
     Dosage: 100 MG, DAILY, ORAL
     Route: 048
     Dates: start: 20051004, end: 20060221
  2. PLAVIX [Concomitant]
  3. ASPIRIN [Concomitant]
  4. TOPROL-XL [Concomitant]
  5. NORVASC [Concomitant]
  6. PRILOSEC [Concomitant]
  7. ALTACE [Concomitant]
  8. HYTRIN [Concomitant]
  9. AREDIA [Concomitant]
  10. DECADRON [Concomitant]
  11. IMDUR [Concomitant]
  12. PROTONIX [Concomitant]
  13. NEPHROCAPS (NEPHROCAPS) [Concomitant]
  14. CALCITRIOL [Concomitant]
  15. ZOVIRAX [Concomitant]

REACTIONS (2)
  - CORONARY ARTERY DISEASE [None]
  - UNEVALUABLE EVENT [None]
